FAERS Safety Report 10708668 (Version 1)
Quarter: 2015Q1

REPORT INFORMATION
  Report Type: Spontaneous
  Country: US (occurrence: US)
  Receive Date: 20150113
  Receipt Date: 20150113
  Transmission Date: 20150721
  Serious: Yes (Other)
  Sender: FDA-Public Use
  Company Number: US-SA-2014SA147801

PATIENT

DRUGS (1)
  1. CLOLAR [Suspect]
     Active Substance: CLOFARABINE
     Dosage: DOSE:0.44 MILLIGRAM(S)/MILLILITRE
     Route: 065

REACTIONS (2)
  - Blood creatine abnormal [Unknown]
  - Nephropathy toxic [Unknown]
